APPROVED DRUG PRODUCT: TOPOTECAN HYDROCHLORIDE
Active Ingredient: TOPOTECAN HYDROCHLORIDE
Strength: EQ 4MG BASE/VIAL
Dosage Form/Route: INJECTABLE;INJECTION
Application: A091089 | Product #001 | TE Code: AP
Applicant: FRESENIUS KABI USA LLC
Approved: Nov 29, 2010 | RLD: No | RS: No | Type: RX